FAERS Safety Report 4610885-1 (Version None)
Quarter: 2005Q2

REPORT INFORMATION
  Report Type: 
  Country: None (occurrence: None)
  Receive Date: 20050302
  Receipt Date: 20040621
  Transmission Date: 20051028
  Serious: Yes (Hospitalization)
  Sender: FDA-Public Use
  Company Number: 2004-117717-NL

PATIENT
  Age: 6 Year
  Sex: Male
  Weight: 25 kg

DRUGS (10)
  1. REMERON SOLTAB [Suspect]
     Indication: ANXIETY
     Dosage: 7.5 MG DAILY ORAL
     Route: 048
     Dates: start: 20040101, end: 20040101
  2. REMERON SOLTAB [Suspect]
     Indication: DEPRESSION
     Dosage: 7.5 MG DAILY ORAL
     Route: 048
     Dates: start: 20040101, end: 20040101
  3. REMERON SOLTAB [Suspect]
     Indication: INSOMNIA
     Dosage: 7.5 MG DAILY ORAL
     Route: 048
     Dates: start: 20040101, end: 20040101
  4. REMERON SOLTAB [Suspect]
     Indication: ANXIETY
     Dosage: 15 MG DAILY ORAL
     Route: 048
     Dates: start: 20040101, end: 20040501
  5. REMERON SOLTAB [Suspect]
     Indication: DEPRESSION
     Dosage: 15 MG DAILY ORAL
     Route: 048
     Dates: start: 20040101, end: 20040501
  6. REMERON SOLTAB [Suspect]
     Indication: INSOMNIA
     Dosage: 15 MG DAILY ORAL
     Route: 048
     Dates: start: 20040101, end: 20040501
  7. REMERON SOLTAB [Suspect]
     Indication: ANXIETY
     Dosage: 30 MG DAILY ORAL
     Route: 048
     Dates: start: 20040501
  8. REMERON SOLTAB [Suspect]
     Indication: DEPRESSION
     Dosage: 30 MG DAILY ORAL
     Route: 048
     Dates: start: 20040501
  9. REMERON SOLTAB [Suspect]
     Indication: INSOMNIA
     Dosage: 30 MG DAILY ORAL
     Route: 048
     Dates: start: 20040501
  10. SINGULAIR [Concomitant]

REACTIONS (1)
  - EXTRAPYRAMIDAL DISORDER [None]
